FAERS Safety Report 9251204 (Version 1)
Quarter: 2013Q1

REPORT INFORMATION
  Report Type: Spontaneous
  Country: US (occurrence: None)
  Receive Date: 20130305
  Receipt Date: 20130305
  Transmission Date: 20140127
  Serious: Yes (Hospitalization)
  Sender: FDA-Public Use
  Company Number: 163-21880-12082733

PATIENT
  Age: 68 Year
  Sex: Female

DRUGS (8)
  1. REVLIMID [Suspect]
     Indication: MYELODYSPLASTIC SYNDROME
     Dosage: 1 IN 1 D
     Route: 048
     Dates: start: 20120621
  2. OMEGA-. (OMEGA-. TRIGLYCERIDES) [Concomitant]
  3. LEVOXYL (LEVOTHYROXINE SODIUM) [Concomitant]
  4. ZOCOR (SIMVASTATIN) [Concomitant]
  5. TYLENOL (PARACETAMOL) [Concomitant]
  6. ESTRADIOL (ESTRADIOL) (GEL) [Concomitant]
  7. DESFERAL (DEFEROXAMINE MESILATE) [Concomitant]
  8. OMEPRAZOLE [Concomitant]

REACTIONS (1)
  - Cerebrovascular accident [None]
